FAERS Safety Report 17534955 (Version 6)
Quarter: 2021Q2

REPORT INFORMATION
  Report Type: Spontaneous
  Country: US (occurrence: US)
  Receive Date: 20200312
  Receipt Date: 20210420
  Transmission Date: 20210716
  Serious: No
  Sender: FDA-Public Use
  Company Number: US-AKCEA THERAPEUTICS-2019IS001582

PATIENT
  Age: 56 Year
  Sex: Female

DRUGS (11)
  1. WITCH HAZEL /01376402/ [Concomitant]
     Route: 065
  2. ISSD (INTEGRATED SYRINGE SAFETY DEVICE) [Suspect]
     Active Substance: DEVICE
  3. POTASSIUM CHLORIDE. [Concomitant]
     Active Substance: POTASSIUM CHLORIDE
     Route: 048
  4. LYRICA [Concomitant]
     Active Substance: PREGABALIN
     Route: 048
  5. SIMVASTATIN. [Concomitant]
     Active Substance: SIMVASTATIN
     Route: 048
  6. GABAPENTIN. [Concomitant]
     Active Substance: GABAPENTIN
     Route: 048
  7. VITAMIN D2 [Concomitant]
     Active Substance: ERGOCALCIFEROL
     Route: 048
  8. TEGSEDI [Suspect]
     Active Substance: INOTERSEN SODIUM
     Indication: HEREDITARY NEUROPATHIC AMYLOIDOSIS
     Route: 058
     Dates: start: 20190601
  9. DIFLUNISAL. [Concomitant]
     Active Substance: DIFLUNISAL
     Route: 048
  10. HYDROCHLOROTHIAZID [Concomitant]
     Active Substance: HYDROCHLOROTHIAZIDE
     Route: 048
  11. MOTRIN [Concomitant]
     Active Substance: IBUPROFEN
     Route: 048

REACTIONS (11)
  - Chromaturia [Unknown]
  - Injection site pruritus [Recovered/Resolved]
  - Proteinuria [Not Recovered/Not Resolved]
  - White blood cells urine positive [Unknown]
  - Urinary casts [Unknown]
  - Blood creatinine increased [Not Recovered/Not Resolved]
  - Urine abnormality [Unknown]
  - Urine protein/creatinine ratio increased [Not Recovered/Not Resolved]
  - Drug ineffective [Unknown]
  - Bacterial test positive [Unknown]
  - Glomerular filtration rate decreased [Unknown]

NARRATIVE: CASE EVENT DATE: 20190601
